FAERS Safety Report 19713280 (Version 1)
Quarter: 2021Q3

REPORT INFORMATION
  Report Type: Spontaneous
  Country: US (occurrence: US)
  Receive Date: 20210817
  Receipt Date: 20210817
  Transmission Date: 20211014
  Serious: No
  Sender: FDA-Public Use
  Company Number: US-JAZZ-2021-US-003165

PATIENT
  Age: 68 Year
  Sex: Male

DRUGS (2)
  1. XYREM [Suspect]
     Active Substance: SODIUM OXYBATE
     Dosage: 0.5 GRAM DAILY
     Route: 048
  2. XYREM [Suspect]
     Active Substance: SODIUM OXYBATE
     Indication: MYOCLONUS
     Dosage: 0.75 GRAM DAILY
     Route: 048

REACTIONS (5)
  - Confusional state [Unknown]
  - Irritability [Unknown]
  - Somnolence [Unknown]
  - Vomiting [Unknown]
  - Off label use [Unknown]
